FAERS Safety Report 6913274-X (Version None)
Quarter: 2010Q3

REPORT INFORMATION
  Report Type: 
  Country: None (occurrence: None)
  Receive Date: 20100809
  Receipt Date: 20100729
  Transmission Date: 20110219
  Serious: Yes (Death)
  Sender: FDA-Public Use
  Company Number: US-BIOGENIDEC-2010BI026658

PATIENT
  Age: 62 Year
  Sex: Female

DRUGS (2)
  1. AVONEX [Suspect]
     Indication: MULTIPLE SCLEROSIS
     Route: 030
     Dates: start: 20080616, end: 20090202
  2. AVONEX [Suspect]
     Route: 030
     Dates: start: 20091102

REACTIONS (2)
  - DEATH [None]
  - VAGINAL HAEMORRHAGE [None]
